FAERS Safety Report 11418328 (Version 4)
Quarter: 2015Q3

REPORT INFORMATION
  Report Type: Report from Study
  Country: US (occurrence: US)
  Receive Date: 20150825
  Receipt Date: 20150928
  Transmission Date: 20151125
  Serious: Yes (Other)
  Sender: FDA-Public Use
  Company Number: US-AMGEN-USASL2015085330

PATIENT
  Age: 36 Year
  Sex: Female

DRUGS (3)
  1. PREDNISONE. [Concomitant]
     Active Substance: PREDNISONE
     Dosage: 5 MG, QD
  2. ENBREL [Suspect]
     Active Substance: ETANERCEPT
     Dosage: UNK
     Route: 065
  3. ENBREL [Suspect]
     Active Substance: ETANERCEPT
     Indication: PSORIATIC ARTHROPATHY
     Dosage: 50 MG, QWK
     Route: 065
     Dates: start: 20150730

REACTIONS (19)
  - Hypersensitivity [Recovered/Resolved]
  - Lymphadenopathy [Unknown]
  - Injection site bruising [Unknown]
  - Injection site erythema [Unknown]
  - Weight increased [Unknown]
  - Pruritus generalised [Unknown]
  - Swelling [Unknown]
  - Peripheral swelling [Unknown]
  - Hepatic enzyme increased [Unknown]
  - Blister [Unknown]
  - Arthritis [Unknown]
  - Autoimmune disorder [Unknown]
  - Rash [Unknown]
  - Throat tightness [Recovered/Resolved]
  - Rubber sensitivity [Unknown]
  - Fatigue [Unknown]
  - Injection site reaction [Unknown]
  - Injection site swelling [Unknown]
  - Dyspnoea [Unknown]

NARRATIVE: CASE EVENT DATE: 2015
